FAERS Safety Report 7272809-0 (Version None)
Quarter: 2011Q1

REPORT INFORMATION
  Report Type: 
  Country: None (occurrence: None)
  Receive Date: 20110203
  Receipt Date: 20110202
  Transmission Date: 20110831
  Serious: Yes (Other)
  Sender: FDA-Public Use
  Company Number: CA-ABBOTT-11P-028-0702239-00

PATIENT
  Age: 44 Year
  Sex: Female

DRUGS (8)
  1. PREDNISONE [Concomitant]
     Indication: PRODUCT USED FOR UNKNOWN INDICATION
  2. GABAPENTIN [Concomitant]
     Indication: PRODUCT USED FOR UNKNOWN INDICATION
  3. PIROXICAM [Concomitant]
     Indication: PRODUCT USED FOR UNKNOWN INDICATION
  4. ETANERCEPT [Suspect]
     Indication: PRODUCT USED FOR UNKNOWN INDICATION
     Route: 058
  5. HUMIRA [Suspect]
     Indication: PRODUCT USED FOR UNKNOWN INDICATION
  6. PREVACID [Concomitant]
     Indication: PRODUCT USED FOR UNKNOWN INDICATION
     Route: 048
  7. OXYCODONE HCL [Concomitant]
     Indication: PRODUCT USED FOR UNKNOWN INDICATION
  8. REMICADE [Concomitant]
     Indication: PRODUCT USED FOR UNKNOWN INDICATION

REACTIONS (7)
  - DIPLOPIA [None]
  - MULTIPLE SCLEROSIS [None]
  - HYPOAESTHESIA FACIAL [None]
  - VISION BLURRED [None]
  - MUSCULAR WEAKNESS [None]
  - BLINDNESS [None]
  - GAIT DISTURBANCE [None]
